FAERS Safety Report 13341958 (Version 2)
Quarter: 2017Q1

REPORT INFORMATION
  Report Type: Spontaneous
  Country: US (occurrence: US)
  Receive Date: 20170316
  Receipt Date: 20170321
  Transmission Date: 20170428
  Serious: Yes (Disabling, Other)
  Sender: FDA-Public Use
  Company Number: US-DRREDDYS-USA/USA/17/0087823

PATIENT
  Sex: Male

DRUGS (2)
  1. SIMVASTATIN. [Suspect]
     Active Substance: SIMVASTATIN
     Indication: PRODUCT USED FOR UNKNOWN INDICATION
     Route: 065
  2. SIMVASTATIN. [Suspect]
     Active Substance: SIMVASTATIN
     Route: 065

REACTIONS (6)
  - Mitochondrial myopathy [Recovering/Resolving]
  - Exercise tolerance decreased [Not Recovered/Not Resolved]
  - Fatigue [Recovering/Resolving]
  - Impaired quality of life [Unknown]
  - Neuropathy peripheral [Recovering/Resolving]
  - Impaired work ability [Unknown]
